FAERS Safety Report 15879786 (Version 3)
Quarter: 2019Q4

REPORT INFORMATION
  Report Type: Report from Study
  Country: KR (occurrence: KR)
  Receive Date: 20190128
  Receipt Date: 20191120
  Transmission Date: 20200122
  Serious: Yes (Other)
  Sender: FDA-Public Use
  Company Number: KR-JAZZ-2019-KR-001212

PATIENT
  Age: 10 Year
  Sex: Female

DRUGS (5)
  1. DEFITELIO [Suspect]
     Active Substance: DEFIBROTIDE SODIUM
     Indication: VENOOCCLUSIVE DISEASE
     Dosage: 6.25 MG/KG, QID
     Route: 042
     Dates: start: 20190116, end: 20190119
  2. MEROPENEM. [Concomitant]
     Active Substance: MEROPENEM
     Indication: INFECTION
     Dosage: 550 MG, TID
     Route: 042
     Dates: start: 20190116, end: 20190216
  3. CURAN [Concomitant]
     Active Substance: RANITIDINE HYDROCHLORIDE
     Indication: PROPHYLAXIS
     Dosage: 50 MG, BID
     Route: 042
     Dates: start: 20190209, end: 20190213
  4. FAMOTIDINE. [Concomitant]
     Active Substance: FAMOTIDINE
     Indication: PROPHYLAXIS
     Dosage: 15 MG, BID
     Route: 042
     Dates: start: 20181226, end: 20190409
  5. ACICLOVIR [Concomitant]
     Active Substance: ACYCLOVIR
     Indication: ANTIVIRAL PROPHYLAXIS
     Dosage: 140 MG, TID
     Route: 042
     Dates: start: 20181231, end: 20190201

REACTIONS (3)
  - Acute graft versus host disease [Recovered/Resolved]
  - Disseminated intravascular coagulation [Recovered/Resolved]
  - Gastrointestinal haemorrhage [Recovered/Resolved]

NARRATIVE: CASE EVENT DATE: 20190117
